FAERS Safety Report 4752131-4 (Version None)
Quarter: 2005Q3

REPORT INFORMATION
  Report Type: 
  Country: None (occurrence: None)
  Receive Date: 20050824
  Receipt Date: 20050824
  Transmission Date: 20060218
  Serious: Yes (Other)
  Sender: FDA-Public Use
  Company Number: None

PATIENT
  Age: 50 Year
  Sex: Male
  Weight: 112 kg

DRUGS (6)
  1. QUETIAPINE  300MG AND 200MG  ASTRA-ZENECA [Suspect]
     Indication: THINKING ABNORMAL
     Dosage: 800MG  EVERY NIGHT PO
     Route: 048
     Dates: start: 20040927, end: 20050823
  2. PANTOPRAZOLE [Concomitant]
  3. TOPIRAMATE [Concomitant]
  4. ATORVASTATIN CALCIUM [Concomitant]
  5. METOPROLOL [Concomitant]
  6. ISOSORBIDE MONONITRATE [Concomitant]

REACTIONS (2)
  - BLOOD PROINSULIN INCREASED [None]
  - GLYCOSYLATED HAEMOGLOBIN INCREASED [None]
